FAERS Safety Report 6274105-7 (Version None)
Quarter: 2009Q3

REPORT INFORMATION
  Report Type: 
  Country: None (occurrence: None)
  Receive Date: 20090720
  Receipt Date: 20090708
  Transmission Date: 20100115
  Serious: Yes (Other)
  Sender: FDA-Public Use
  Company Number: PHEH2009US07395

PATIENT

DRUGS (1)
  1. CLOZARIL [Suspect]
     Dosage: 400 MG, QD

REACTIONS (1)
  - COGNITIVE DISORDER [None]
